FAERS Safety Report 18012611 (Version 2)
Quarter: 2020Q4

REPORT INFORMATION
  Report Type: Spontaneous
  Country: US (occurrence: US)
  Receive Date: 20200713
  Receipt Date: 20201223
  Transmission Date: 20210113
  Serious: Yes (Disabling)
  Sender: FDA-Public Use
  Company Number: US-TEVA-2020-US-1799200

PATIENT
  Age: 47 Year
  Sex: Female

DRUGS (8)
  1. CYTOXAN [Concomitant]
     Active Substance: CYCLOPHOSPHAMIDE
     Indication: BREAST CANCER FEMALE
     Dosage: DOSAGE: UNKNOWN; NUMBER OF CYCLES: 04; EVERY THREE WEEKS
     Route: 065
     Dates: start: 20120131, end: 20141125
  2. CYTOXAN [Concomitant]
     Active Substance: CYCLOPHOSPHAMIDE
     Dosage: DOSAGE: UNKNOWN; NUMBER OF CYCLES: 01; EVERY THREE WEEKS
     Route: 065
     Dates: start: 2014
  3. ELLENCE [Concomitant]
     Active Substance: EPIRUBICIN HYDROCHLORIDE
     Dosage: DOSAGE: UNKNOWN; NUMBER OF CYCLES: 01; EVERY THREE WEEKS
     Route: 065
     Dates: start: 2014
  4. TAXOTERE [Suspect]
     Active Substance: DOCETAXEL
     Indication: BREAST CANCER FEMALE
     Dosage: DOSAGE: UNKNOWN; NUMBER OF CYCLES: 04; EVERY THREE WEEKS
     Route: 065
     Dates: start: 20120131, end: 20141125
  5. TAXOTERE [Suspect]
     Active Substance: DOCETAXEL
     Dosage: DOSAGE: UNKNOWN; NUMBER OF CYCLES: 1; EVERY THREE WEEKS
     Route: 065
     Dates: start: 2014
  6. ELLENCE [Concomitant]
     Active Substance: EPIRUBICIN HYDROCHLORIDE
     Indication: BREAST CANCER FEMALE
     Dosage: DOSAGE: UNKNOWN; NUMBER OF CYCLES: 04; EVERY THREE WEEKS
     Route: 065
     Dates: start: 20120131, end: 20141125
  7. DOCETAXEL. [Suspect]
     Active Substance: DOCETAXEL
     Indication: BREAST CANCER FEMALE
     Dosage: DOSAGE: 75MG; NUMBER OF CYCLES: 05; EVERY THREE WEEKS
     Route: 065
     Dates: start: 20120131, end: 20141125
  8. EFUDEX [Concomitant]
     Active Substance: FLUOROURACIL
     Indication: BREAST CANCER FEMALE
     Dosage: DOSAGE: UNKNOWN; NUMBER OF CYCLES: 05; EVERY THREE WEEKS
     Route: 065
     Dates: start: 20120131, end: 20141125

REACTIONS (4)
  - Hair texture abnormal [Not Recovered/Not Resolved]
  - Alopecia areata [Not Recovered/Not Resolved]
  - Hair colour changes [Not Recovered/Not Resolved]
  - Madarosis [Not Recovered/Not Resolved]

NARRATIVE: CASE EVENT DATE: 20120201
